FAERS Safety Report 8337600-2 (Version None)
Quarter: 2012Q2

REPORT INFORMATION
  Report Type: 
  Country: None (occurrence: None)
  Receive Date: 20120504
  Receipt Date: 20120427
  Transmission Date: 20120825
  Serious: Yes (Hospitalization)
  Sender: FDA-Public Use
  Company Number: FR-ASTRAZENECA-2012SE27779

PATIENT
  Age: 85 Year
  Sex: Male

DRUGS (6)
  1. ATACAND [Suspect]
     Indication: HYPERTENSION
     Route: 048
     Dates: end: 20120322
  2. ATACAND [Suspect]
     Route: 048
     Dates: end: 20120406
  3. NEBIVOLOL HCL [Suspect]
     Indication: HYPERTENSION
     Route: 048
     Dates: end: 20120407
  4. LASIX [Suspect]
     Indication: HYPERTENSION
     Route: 048
     Dates: end: 20120407
  5. PREVISCAN [Suspect]
     Dosage: 20 MG PER DAY ALTERNATELY WITH 20 MG 1.25 DF PER DAY
     Route: 048
     Dates: end: 20120409
  6. ATORVASTATIN [Suspect]
     Indication: HYPERCHOLESTEROLAEMIA
     Route: 048

REACTIONS (2)
  - ORTHOSTATIC HYPOTENSION [None]
  - RENAL FAILURE ACUTE [None]
